FAERS Safety Report 11712688 (Version 1)
Quarter: 2015Q4

REPORT INFORMATION
  Report Type: Spontaneous
  Country: US (occurrence: US)
  Receive Date: 20151104
  Receipt Date: 20151104
  Transmission Date: 20160304
  Serious: No
  Sender: FDA-Public Use
  Company Number: US-ELI_LILLY_AND_COMPANY-US201107007729

PATIENT
  Sex: Female

DRUGS (2)
  1. TAPAZOLE [Concomitant]
     Active Substance: METHIMAZOLE
  2. FORTEO [Suspect]
     Active Substance: TERIPARATIDE
     Indication: OSTEOPOROSIS
     Dosage: 20 UG, QD
     Dates: start: 201102

REACTIONS (5)
  - Musculoskeletal discomfort [Unknown]
  - Abdominal distension [Unknown]
  - Hypoaesthesia [Unknown]
  - Joint swelling [Unknown]
  - Arthralgia [Unknown]
